FAERS Safety Report 7377661-0 (Version None)
Quarter: 2011Q1

REPORT INFORMATION
  Report Type: 
  Country: None (occurrence: None)
  Receive Date: 20110328
  Receipt Date: 20110315
  Transmission Date: 20110831
  Serious: Yes (Other)
  Sender: FDA-Public Use
  Company Number: PHHY2011FR21108

PATIENT
  Sex: Female

DRUGS (1)
  1. TEGRETOL [Suspect]
     Indication: EPILEPSY
     Dosage: UNK
     Dates: start: 19920304, end: 19920330

REACTIONS (6)
  - TOXIC EPIDERMAL NECROLYSIS [None]
  - TRACHEAL STENOSIS [None]
  - SKIN BURNING SENSATION [None]
  - RASH [None]
  - ASTHMA [None]
  - BLINDNESS UNILATERAL [None]
